FAERS Safety Report 7325632-2 (Version None)
Quarter: 2011Q1

REPORT INFORMATION
  Report Type: 
  Country: None (occurrence: None)
  Receive Date: 20110302
  Receipt Date: 20110228
  Transmission Date: 20110831
  Serious: Yes (Hospitalization, Other)
  Sender: FDA-Public Use
  Company Number: US-PFIZER INC-2011017607

PATIENT
  Sex: Male
  Weight: 81.633 kg

DRUGS (1)
  1. CELEBREX [Suspect]
     Indication: ARTHRITIS
     Dosage: UNK
     Route: 048
     Dates: start: 20070101

REACTIONS (4)
  - GASTRIC HAEMORRHAGE [None]
  - HYPERSENSITIVITY [None]
  - IMPAIRED WORK ABILITY [None]
  - FAECES DISCOLOURED [None]
